FAERS Safety Report 18842716 (Version 1)
Quarter: 2021Q1

REPORT INFORMATION
  Report Type: Spontaneous
  Country: US (occurrence: US)
  Receive Date: 20210203
  Receipt Date: 20210203
  Transmission Date: 20210419
  Serious: No
  Sender: FDA-Public Use
  Company Number: US-ASTRAZENECA-2021A016147

PATIENT
  Age: 20574 Day
  Sex: Male

DRUGS (4)
  1. HUMALOG [Concomitant]
     Active Substance: INSULIN LISPRO
  2. BYDUREON [Suspect]
     Active Substance: EXENATIDE
     Indication: WEIGHT ABNORMAL
     Route: 058
     Dates: start: 2019
  3. BYDUREON [Suspect]
     Active Substance: EXENATIDE
     Indication: APPETITE DISORDER
     Route: 058
     Dates: start: 2019
  4. TOUJEO MAX SOLO STAR [Concomitant]

REACTIONS (6)
  - Device malfunction [Unknown]
  - Injection site haemorrhage [Unknown]
  - Wrong technique in device usage process [Recovered/Resolved]
  - Intentional device misuse [Unknown]
  - Injection site erythema [Unknown]
  - Injection site mass [Unknown]

NARRATIVE: CASE EVENT DATE: 20210121
